FAERS Safety Report 18210874 (Version 1)
Quarter: 2020Q3

REPORT INFORMATION
  Report Type: Spontaneous
  Country: US (occurrence: US)
  Receive Date: 20200830
  Receipt Date: 20200830
  Transmission Date: 20201103
  Serious: No
  Sender: FDA-Public Use
  Company Number: US-ENDO PHARMACEUTICALS INC-2019-109606

PATIENT
  Sex: Female
  Weight: 92.5 kg

DRUGS (2)
  1. PREDNISONE. [Suspect]
     Active Substance: PREDNISONE
     Dosage: I HAVE TAPERED DOWN THIS WEEK
     Route: 065
     Dates: start: 201911
  2. PREDNISONE. [Suspect]
     Active Substance: PREDNISONE
     Indication: COLITIS ULCERATIVE
     Dosage: 40 MG (5MG 8 TABLETS A DAY), DAILY
     Route: 065

REACTIONS (1)
  - Weight increased [Unknown]
